FAERS Safety Report 20109165 (Version 1)
Quarter: 2021Q4

REPORT INFORMATION
  Report Type: Other
  Country: PE (occurrence: None)
  Receive Date: 20211124
  Receipt Date: 20211124
  Transmission Date: 20220304
  Serious: Yes (Hospitalization, Other)
  Sender: FDA-Public Use
  Company Number: PE-ROCHE-2898688

PATIENT
  Age: 52 Year
  Sex: Female

DRUGS (1)
  1. ACTEMRA [Suspect]
     Active Substance: TOCILIZUMAB
     Indication: Rheumatoid arthritis
     Dosage: RECENT DOSE: /JUL/2021
     Route: 058
     Dates: start: 20141124, end: 202107

REACTIONS (4)
  - Colectomy [Unknown]
  - Intestinal perforation [Unknown]
  - Stoma site oedema [Unknown]
  - Stoma site infection [Unknown]

NARRATIVE: CASE EVENT DATE: 20210814
